FAERS Safety Report 9861208 (Version 1)
Quarter: 2014Q1

REPORT INFORMATION
  Report Type: Spontaneous
  Country: AU (occurrence: AU)
  Receive Date: 20140202
  Receipt Date: 20140202
  Transmission Date: 20141002
  Serious: No
  Sender: FDA-Public Use
  Company Number: AU-ALLERGAN-1304030US

PATIENT
  Sex: Female

DRUGS (2)
  1. BOTOX [Suspect]
     Indication: SKIN WRINKLING
     Dosage: 25 UNITS, SINGLE
     Route: 030
     Dates: start: 20130305, end: 20130305
  2. BOTOX [Suspect]
     Indication: SKIN WRINKLING

REACTIONS (3)
  - Eyelid sensory disorder [Unknown]
  - Brow ptosis [Unknown]
  - Facial paresis [Unknown]
